FAERS Safety Report 8529574-6 (Version None)
Quarter: 2012Q3

REPORT INFORMATION
  Report Type: 
  Country: None (occurrence: None)
  Receive Date: 20120723
  Receipt Date: 20120613
  Transmission Date: 20120928
  Serious: No
  Sender: FDA-Public Use
  Company Number: US-009507513-2012SP032755

PATIENT

DRUGS (2)
  1. NUVARING [Suspect]
     Indication: ANAEMIA
     Dosage: 1 DF, UNK
     Route: 067
  2. NUVARING [Suspect]
     Indication: MENORRHAGIA

REACTIONS (2)
  - OFF LABEL USE [None]
  - CYTOLYTIC VAGINOSIS [None]
